FAERS Safety Report 6383528-7 (Version None)
Quarter: 2009Q4

REPORT INFORMATION
  Report Type: 
  Country: None (occurrence: None)
  Receive Date: 20091001
  Receipt Date: 20090925
  Transmission Date: 20100525
  Serious: Yes (Other)
  Sender: FDA-Public Use
  Company Number: US-ROCHE-654184

PATIENT
  Sex: Female
  Weight: 44.5 kg

DRUGS (1)
  1. BONIVA [Suspect]
     Indication: OSTEOPENIA
     Dosage: ADDITIONAL INDICATION OSTEOPOROSIS
     Route: 042
     Dates: start: 20090305, end: 20090601

REACTIONS (2)
  - DENTAL CARIES [None]
  - JAW DISORDER [None]
